FAERS Safety Report 5251552-3 (Version None)
Quarter: 2007Q1

REPORT INFORMATION
  Report Type: 
  Country: None (occurrence: None)
  Receive Date: 20070228
  Receipt Date: 20060915
  Transmission Date: 20070707
  Serious: No
  Sender: FDA-Public Use
  Company Number: US-GLAXOSMITHKLINE-A0620337A

PATIENT
  Sex: Female

DRUGS (4)
  1. LAMICTAL [Suspect]
     Indication: BIPOLAR DISORDER
     Dosage: 150MG PER DAY
     Route: 048
  2. ORAL CONTRACEPTIVE [Concomitant]
  3. EFFEXOR [Concomitant]
  4. ATIVAN [Concomitant]

REACTIONS (3)
  - INFLUENZA LIKE ILLNESS [None]
  - MOUTH ULCERATION [None]
  - PYREXIA [None]
